FAERS Safety Report 4507940-3 (Version None)
Quarter: 2004Q4

REPORT INFORMATION
  Report Type: 
  Country: None (occurrence: None)
  Receive Date: 20041123
  Receipt Date: 20040923
  Transmission Date: 20050328
  Serious: Yes (Other)
  Sender: FDA-Public Use
  Company Number: PHBS2004BR12749

PATIENT
  Age: 40 Year
  Sex: Female

DRUGS (1)
  1. SANDOSTATIN LAR [Suspect]
     Indication: ACROMEGALY
     Dosage: 20 MG EVERY 28 DAYS
     Route: 030
     Dates: start: 20040817, end: 20040915

REACTIONS (9)
  - ARTHRALGIA [None]
  - ERYTHEMA [None]
  - ERYTHEMA MULTIFORME [None]
  - HYPERSENSITIVITY [None]
  - INJECTION SITE REACTION [None]
  - JOINT SWELLING [None]
  - PRURITUS [None]
  - RASH PAPULAR [None]
  - SKIN LESION [None]
